FAERS Safety Report 17205727 (Version 1)
Quarter: 2019Q4

REPORT INFORMATION
  Report Type: Spontaneous
  Country: IT (occurrence: IT)
  Receive Date: 20191227
  Receipt Date: 20191227
  Transmission Date: 20200122
  Serious: Yes (Death, Hospitalization, Other)
  Sender: FDA-Public Use
  Company Number: IT-ROCHE-2504574

PATIENT
  Age: 48 Year
  Sex: Female

DRUGS (1)
  1. RITUXIMAB. [Suspect]
     Active Substance: RITUXIMAB
     Indication: LYMPHOMA
     Route: 065

REACTIONS (7)
  - Pyrexia [Unknown]
  - Asthenia [Unknown]
  - Ventricular dysfunction [Unknown]
  - Pancytopenia [Unknown]
  - Aspergilloma [Fatal]
  - Intracardiac mass [Fatal]
  - Hepatic congestion [Unknown]
